FAERS Safety Report 13566240 (Version 1)
Quarter: 2017Q2

REPORT INFORMATION
  Report Type: Spontaneous
  Country: US (occurrence: US)
  Receive Date: 20170519
  Receipt Date: 20170519
  Transmission Date: 20170830
  Serious: Yes (Death)
  Sender: FDA-Public Use
  Company Number: None

PATIENT
  Age: 84 Year
  Sex: Female

DRUGS (8)
  1. VITAMIN D3 [Concomitant]
     Active Substance: CHOLECALCIFEROL
  2. CALTRATE [Concomitant]
     Active Substance: CALCIUM CARBONATE
  3. ARANESP [Concomitant]
     Active Substance: DARBEPOETIN ALFA
  4. EXJADE [Suspect]
     Active Substance: DEFERASIROX
     Indication: IRON METABOLISM DISORDER
     Dosage: 2 TABLETS IN 7 OZ OF WATER/JUICE ONCE DAILY BY MOUTH
     Route: 048
     Dates: start: 20150708, end: 201705
  5. WARFARIN [Concomitant]
     Active Substance: WARFARIN
  6. CENTRUM [Concomitant]
     Active Substance: VITAMINS
  7. PREDNISONE. [Concomitant]
     Active Substance: PREDNISONE
  8. LEVOTHROID [Concomitant]
     Active Substance: LEVOTHYROXINE SODIUM

REACTIONS (1)
  - Death [None]

NARRATIVE: CASE EVENT DATE: 20170508
